FAERS Safety Report 6306815-7 (Version None)
Quarter: 2009Q3

REPORT INFORMATION
  Report Type: 
  Country: None (occurrence: None)
  Receive Date: 20090811
  Receipt Date: 20090811
  Transmission Date: 20100115
  Serious: Yes (Other)
  Sender: FDA-Public Use
  Company Number: None

PATIENT
  Age: 59 Year
  Sex: Female
  Weight: 99.7913 kg

DRUGS (2)
  1. PREDNISOLONE ACETATE [Suspect]
     Indication: POST PROCEDURAL SWELLING
     Dosage: ONE GTT LEFT EYE, 6 X DAY, OPHTHALMIC
     Route: 047
     Dates: start: 20090322, end: 20090810
  2. PREDNISOLONE ACETATE [Suspect]

REACTIONS (3)
  - EYELID OEDEMA [None]
  - HYPERSENSITIVITY [None]
  - PRODUCT SUBSTITUTION ISSUE [None]
